FAERS Safety Report 10086598 (Version 1)
Quarter: 2014Q2

REPORT INFORMATION
  Report Type: Spontaneous
  Country: US (occurrence: None)
  Receive Date: 20140417
  Receipt Date: 20140417
  Transmission Date: 20141212
  Serious: Yes (Other)
  Sender: FDA-Public Use
  Company Number: None

PATIENT
  Age: 47 Year
  Sex: Male
  Weight: 100 kg

DRUGS (4)
  1. CLOFAZIMINE [Suspect]
     Indication: MYCOBACTERIUM ABSCESSUS INFECTION
     Route: 048
     Dates: start: 20121201, end: 20130210
  2. CLOFAZIMINE [Suspect]
     Indication: ABDOMINAL INFECTION
     Route: 048
     Dates: start: 20121201, end: 20130210
  3. LINEZOLID [Suspect]
     Indication: MYCOBACTERIUM ABSCESSUS INFECTION
     Route: 048
     Dates: start: 20121121, end: 20130210
  4. LINEZOLID [Suspect]
     Indication: ABDOMINAL INFECTION
     Route: 048
     Dates: start: 20121121, end: 20130210

REACTIONS (1)
  - Drug-induced liver injury [None]
